FAERS Safety Report 8034984 (Version 3)
Quarter: 2014Q2

REPORT INFORMATION
  Report Type: Spontaneous
  Country: US (occurrence: US)
  Receive Date: 20110714
  Receipt Date: 20131024
  Transmission Date: 20141212
  Serious: Yes (Other)
  Sender: FDA-Public Use
  Company Number: US-PFIZER INC-HQWYE775902MAR05

PATIENT
  Age: 53 Year
  Sex: Female
  Weight: 71 kg

DRUGS (1)
  1. PREMPRO [Suspect]
     Indication: HORMONE REPLACEMENT THERAPY
     Dosage: 0.625/2.5 MG
     Route: 048
     Dates: start: 19980622, end: 200206

REACTIONS (1)
  - Breast cancer female [Recovered/Resolved]
